FAERS Safety Report 24528691 (Version 1)
Quarter: 2024Q4

REPORT INFORMATION
  Report Type: Spontaneous
  Country: JP (occurrence: JP)
  Receive Date: 20241021
  Receipt Date: 20241021
  Transmission Date: 20250115
  Serious: Yes (Other)
  Sender: PFIZER
  Company Number: JP-PFIZER INC-202400278023

PATIENT
  Age: 77 Year
  Sex: Female

DRUGS (1)
  1. CLINDAMYCIN HYDROCHLORIDE [Suspect]
     Active Substance: CLINDAMYCIN HYDROCHLORIDE
     Indication: Cellulitis
     Dosage: 2 CAPSULES EACH MORNING, NOON AND NIGHT; TAKING 6 CAPSULES PER DAY
     Route: 048
     Dates: start: 202409

REACTIONS (5)
  - Arrhythmia [Unknown]
  - Fluid retention [Recovered/Resolved]
  - Dizziness [Unknown]
  - Brain fog [Unknown]
  - Headache [Unknown]
